FAERS Safety Report 4297515-6 (Version None)
Quarter: 2004Q1

REPORT INFORMATION
  Report Type: 
  Country: None (occurrence: None)
  Receive Date: 20040213
  Receipt Date: 20040204
  Transmission Date: 20041129
  Serious: Yes (Hospitalization)
  Sender: FDA-Public Use
  Company Number: 040204-PM0261-00

PATIENT
  Age: 5 Year
  Sex: Male

DRUGS (1)
  1. NEMBUTAL [Suspect]
     Indication: SEDATION
     Dosage: 2 MG/KG, ONCE, IV
     Route: 042

REACTIONS (2)
  - DRUG EFFECT PROLONGED [None]
  - SEDATION [None]
